FAERS Safety Report 19427042 (Version 3)
Quarter: 2022Q1

REPORT INFORMATION
  Report Type: Report from Study
  Country: US (occurrence: US)
  Receive Date: 20210616
  Receipt Date: 20220114
  Transmission Date: 20220423
  Serious: Yes (Other)
  Sender: FDA-Public Use
  Company Number: US-REGENERON PHARMACEUTICALS, INC.-2021-58508

PATIENT
  Age: 21 Year
  Sex: Female

DRUGS (7)
  1. CASIRIVIMAB\IMDEVIMAB [Suspect]
     Active Substance: CASIRIVIMAB\IMDEVIMAB
     Indication: COVID-19
     Dosage: 2.4 G, SINGLE
     Route: 042
     Dates: start: 20210607, end: 20210607
  2. ALBUTEROL SULFATE [Concomitant]
     Active Substance: ALBUTEROL SULFATE
     Indication: Asthma
     Dosage: 90 MCG/ACTUATION INHALER INHALE 1-2 PUFFS INTO THE LUNGS
     Route: 055
  3. FIORICET [Concomitant]
     Active Substance: ACETAMINOPHEN\BUTALBITAL\CAFFEINE
     Indication: Product used for unknown indication
     Dosage: UNKNOWN
     Route: 048
  4. CONCEPT DHA [Concomitant]
     Active Substance: ASCORBIC ACID\BIOTIN\CALCIUM PANTOTHENATE\CUPRIC SULFATE\CYANOCOBALAMIN\FERROUS FUMARATE\FOLIC ACID\
     Indication: Product used for unknown indication
     Dosage: 35-1-200 MG TAKE BY MOUTH DAILY.
     Route: 048
     Dates: start: 20210607
  5. FLOVENT HFA [Concomitant]
     Active Substance: FLUTICASONE PROPIONATE
     Indication: Asthma
     Dosage: 110 MCG/ACTUATION INHALER - INHALE 1 PUFF INTO THE LUNGS EVERY 12 HOURS
     Route: 055
  6. LATUDA [Concomitant]
     Active Substance: LURASIDONE HYDROCHLORIDE
     Indication: Product used for unknown indication
     Dosage: 40 MG, TAKE 40 MG BY MOUTH DAILY.
     Route: 048
     Dates: start: 20210607
  7. PROMETRIUM [Concomitant]
     Active Substance: PROGESTERONE
     Indication: Premature labour
     Dosage: 200 MG CAPSULE - PLACE 1 CAPSULE VAGINALLY NIGHT AT BEDTIME
     Route: 067

REACTIONS (6)
  - Infusion related hypersensitivity reaction [Recovered/Resolved]
  - Pruritus [Recovered/Resolved]
  - Urticaria [Recovered/Resolved]
  - Flushing [Recovered/Resolved]
  - Exposure during pregnancy [Unknown]
  - Incorrect dose administered [Recovered/Resolved]

NARRATIVE: CASE EVENT DATE: 20210607
